FAERS Safety Report 24136762 (Version 6)
Quarter: 2024Q4

REPORT INFORMATION
  Report Type: Report from Study
  Country: US (occurrence: US)
  Receive Date: 20240725
  Receipt Date: 20241129
  Transmission Date: 20250115
  Serious: Yes (Other)
  Sender: CSL BEHRING
  Company Number: US-BEH-2024175907

PATIENT
  Age: 38 Year
  Sex: Female
  Weight: 78 kg

DRUGS (7)
  1. HAEGARDA [Suspect]
     Active Substance: HUMAN C1-ESTERASE INHIBITOR
     Indication: Hereditary angioedema
     Dosage: 5000 IU, EVERY 3 TO 4 DAYS
     Route: 058
     Dates: start: 20240712, end: 20240712
  2. HAEGARDA [Suspect]
     Active Substance: HUMAN C1-ESTERASE INHIBITOR
     Dosage: 5000 IU, EVERY 3 TO 4 DAYS
     Route: 058
     Dates: start: 20240712, end: 20240722
  3. HAEGARDA [Suspect]
     Active Substance: HUMAN C1-ESTERASE INHIBITOR
     Dosage: UNK
     Route: 058
  4. HAEGARDA [Suspect]
     Active Substance: HUMAN C1-ESTERASE INHIBITOR
     Dosage: UNK
     Route: 058
     Dates: start: 20240719
  5. HAEGARDA [Suspect]
     Active Substance: HUMAN C1-ESTERASE INHIBITOR
     Dosage: UNK, EVERY 3 DAYS
     Route: 058
  6. BERINERT [Suspect]
     Active Substance: HUMAN C1-ESTERASE INHIBITOR
     Indication: Hereditary angioedema
     Dosage: 3000 IU, BIW
     Route: 058
  7. BERINERT [Suspect]
     Active Substance: HUMAN C1-ESTERASE INHIBITOR
     Indication: Prophylaxis
     Dosage: 55000.0IU/KG 2TW
     Route: 058

REACTIONS (9)
  - Swelling [Recovered/Resolved]
  - Hereditary angioedema [Recovering/Resolving]
  - Therapeutic response shortened [Unknown]
  - Lupus-like syndrome [Unknown]
  - Rash [Not Recovered/Not Resolved]
  - Product dose omission in error [Unknown]
  - Swelling [Unknown]
  - Abdominal distension [Unknown]
  - Rash [Recovered/Resolved]

NARRATIVE: CASE EVENT DATE: 20240712
